FAERS Safety Report 6145078-2 (Version None)
Quarter: 2009Q2

REPORT INFORMATION
  Report Type: 
  Country: None (occurrence: None)
  Receive Date: 20090401
  Receipt Date: 20090401
  Transmission Date: 20091009
  Serious: Yes (Hospitalization)
  Sender: FDA-Public Use
  Company Number: None

PATIENT
  Sex: Female
  Weight: 65.7716 kg

DRUGS (2)
  1. DIFLUCAN [Suspect]
     Indication: CANDIDIASIS
     Dosage: 2 TABLETS 1 DAY PO 1 TABLET DAILY FOR 10 DAYS PO
     Route: 048
     Dates: start: 20081217, end: 20081227
  2. . [Concomitant]

REACTIONS (1)
  - STEVENS-JOHNSON SYNDROME [None]
